FAERS Safety Report 16789790 (Version 2)
Quarter: 2019Q3

REPORT INFORMATION
  Report Type: Report from Study
  Country: US (occurrence: MX)
  Receive Date: 20190910
  Receipt Date: 20190916
  Transmission Date: 20191005
  Serious: Yes (Hospitalization, Other)
  Sender: FDA-Public Use
  Company Number: US-SUNOVION-2019SUN003640

PATIENT
  Sex: Male
  Weight: 90 kg

DRUGS (4)
  1. GABAPENTIN. [Concomitant]
     Active Substance: GABAPENTIN
     Indication: PERIPHERAL SWELLING
     Dosage: 1 DF, QD
     Route: 065
     Dates: start: 2018
  2. INDACATEROL AND GLYCOPYRROLATE [Suspect]
     Active Substance: GLYCOPYRROLATE\INDACATEROL MALEATE
     Indication: LUNG DISORDER
     Dosage: 1 DF, (50 UG) QD
     Route: 055
     Dates: start: 20180718
  3. TELMISARTAN. [Concomitant]
     Active Substance: TELMISARTAN
     Indication: BLOOD PRESSURE ABNORMAL
     Dosage: 80 MG, QD
     Route: 048
  4. INDACATEROL AND GLYCOPYRROLATE [Suspect]
     Active Substance: GLYCOPYRROLATE\INDACATEROL MALEATE
     Indication: PNEUMONIA

REACTIONS (2)
  - Product use in unapproved indication [Unknown]
  - Tuberculosis [Recovered/Resolved]
